FAERS Safety Report 6401822-8 (Version None)
Quarter: 2009Q4

REPORT INFORMATION
  Report Type: 
  Country: None (occurrence: None)
  Receive Date: 20091013
  Receipt Date: 20091008
  Transmission Date: 20100525
  Serious: Yes (Life-Threatening, Hospitalization)
  Sender: FDA-Public Use
  Company Number: 20097389

PATIENT
  Sex: Female

DRUGS (8)
  1. LIORESAL [Suspect]
     Indication: MUSCLE SPASTICITY
     Dosage: 240 - 100 MCG, DAILY, INTRATHECAL
     Route: 037
  2. TRAZODONE HCL [Concomitant]
  3. CYMBALTA [Concomitant]
  4. KLONOPIN [Concomitant]
  5. REQUIP [Concomitant]
  6. NORCO [Concomitant]
  7. APAP TAB [Concomitant]
  8. MIRALAX [Concomitant]

REACTIONS (23)
  - CARDIOVASCULAR DISORDER [None]
  - DYSTONIA [None]
  - FAECAL INCONTINENCE [None]
  - GENERAL PHYSICAL HEALTH DETERIORATION [None]
  - HALLUCINATION [None]
  - HYPERHIDROSIS [None]
  - HYPOTENSION [None]
  - IRREGULAR SLEEP PHASE [None]
  - LETHARGY [None]
  - LOSS OF CONSCIOUSNESS [None]
  - MALAISE [None]
  - MENTAL STATUS CHANGES [None]
  - MUSCLE SPASMS [None]
  - MUSCLE SPASTICITY [None]
  - OVERDOSE [None]
  - PCO2 INCREASED [None]
  - RESPIRATORY RATE DECREASED [None]
  - SOMNOLENCE [None]
  - SPEECH DISORDER [None]
  - SYNCOPE [None]
  - THERAPY CESSATION [None]
  - UNRESPONSIVE TO STIMULI [None]
  - URINARY INCONTINENCE [None]
